FAERS Safety Report 9826809 (Version 1)
Quarter: 2013Q4

REPORT INFORMATION
  Report Type: Spontaneous
  Country: US (occurrence: None)
  Receive Date: 20131120
  Receipt Date: 20131120
  Transmission Date: 20140711
  Serious: Yes (Hospitalization)
  Sender: FDA-Public Use
  Company Number: A-US2012-72962

PATIENT
  Age: 51 Year
  Sex: Female

DRUGS (12)
  1. VENTAVIS [Suspect]
     Indication: PULMONARY HYPERTENSION
     Route: 055
     Dates: start: 20120627
  2. CEFEPIME (CEFEPIME) [Concomitant]
  3. FOLIC ACID (FOLIC ACID) [Concomitant]
  4. METOPROLOL (METOPROLOL TARTRATE) [Concomitant]
  5. LIPITOR (ATORVASTATIN CALCIUM) [Concomitant]
  6. TORSEMIDE (TORASEMIDE) [Concomitant]
  7. LORAZEPAM (LORAZEPAM) [Concomitant]
  8. ALDACTONE (SPIRONOLACTONE) [Concomitant]
  9. CARAFATE (SUCRALFATE) [Concomitant]
  10. GAS-X (SIMETICONE) [Concomitant]
  11. INSULIN (INSULIN) [Concomitant]
  12. LEVOTHYROXINE (LEVOTHYROXINE SODIUM) [Concomitant]

REACTIONS (2)
  - Cardiac failure congestive [None]
  - Dyspnoea [None]
